FAERS Safety Report 6131795-7 (Version None)
Quarter: 2009Q1

REPORT INFORMATION
  Report Type: 
  Country: None (occurrence: None)
  Receive Date: 20090323
  Receipt Date: 20090311
  Transmission Date: 20090719
  Serious: Yes (Disabling)
  Sender: FDA-Public Use
  Company Number: ENTC2009-0073

PATIENT
  Sex: Male

DRUGS (2)
  1. STALEVO 100 [Suspect]
     Indication: PARKINSON'S DISEASE
     Dosage: 150 MG ORAL
     Route: 048
     Dates: start: 20090220
  2. REQUIP [Concomitant]

REACTIONS (4)
  - CONDITION AGGRAVATED [None]
  - PARALYSIS [None]
  - PARKINSON'S DISEASE [None]
  - PRODUCT QUALITY ISSUE [None]
